FAERS Safety Report 8189982-2 (Version None)
Quarter: 2012Q1

REPORT INFORMATION
  Report Type: 
  Country: None (occurrence: None)
  Receive Date: 20120307
  Receipt Date: 20120221
  Transmission Date: 20120608
  Serious: Yes (Hospitalization)
  Sender: FDA-Public Use
  Company Number: IE-MEDIMMUNE-MEDI-0015067

PATIENT
  Sex: Male
  Weight: 5.86 kg

DRUGS (3)
  1. SYNAGIS [Suspect]
     Route: 030
     Dates: start: 20111010, end: 20111010
  2. KAPSOVIT [Concomitant]
  3. IRON [Concomitant]

REACTIONS (1)
  - VIRAL INFECTION [None]
